FAERS Safety Report 4283670-0 (Version None)
Quarter: 2004Q1

REPORT INFORMATION
  Report Type: 
  Country: None (occurrence: None)
  Receive Date: 20040202
  Receipt Date: 20040126
  Transmission Date: 20041129
  Serious: Yes (Hospitalization)
  Sender: FDA-Public Use
  Company Number: GB-ROCHE-357105

PATIENT
  Sex: Male

DRUGS (2)
  1. ROACCUTANE [Suspect]
     Indication: ACNE
     Route: 065
  2. ROACCUTANE [Suspect]
     Route: 065

REACTIONS (3)
  - ACNE CONGLOBATA [None]
  - SKIN ULCER [None]
  - SUBCUTANEOUS ABSCESS [None]
